FAERS Safety Report 15484060 (Version 1)
Quarter: 2018Q4

REPORT INFORMATION
  Report Type: Spontaneous
  Country: US (occurrence: US)
  Receive Date: 20181003
  Receipt Date: 20181003
  Transmission Date: 20190205
  Serious: Yes (Hospitalization)
  Sender: FDA-Public Use
  Company Number: None

PATIENT
  Age: 66 Year
  Sex: Male
  Weight: 91 kg

DRUGS (2)
  1. ACETAMINOPHEN AND CODEINE [Suspect]
     Active Substance: ACETAMINOPHEN\CODEINE PHOSPHATE
     Indication: PAIN
     Dosage: ?          OTHER DOSE:1 TAB ;?
     Route: 048
     Dates: start: 20180708, end: 20180909
  2. ESZOPICLONE. [Suspect]
     Active Substance: ESZOPICLONE
     Indication: INSOMNIA
     Route: 048
     Dates: start: 20180904, end: 20180909

REACTIONS (3)
  - Somnolence [None]
  - Blood potassium increased [None]
  - Acute kidney injury [None]

NARRATIVE: CASE EVENT DATE: 20180909
